FAERS Safety Report 23964300 (Version 1)
Quarter: 2024Q2

REPORT INFORMATION
  Report Type: Spontaneous
  Country: FR (occurrence: FR)
  Receive Date: 20240611
  Receipt Date: 20240611
  Transmission Date: 20240716
  Serious: Yes (Other)
  Sender: FDA-Public Use
  Company Number: FR-GLAXOSMITHKLINE-FR2023GSK050420

PATIENT
  Age: 32 Year
  Sex: Female

DRUGS (11)
  1. LENALIDOMIDE [Suspect]
     Active Substance: LENALIDOMIDE
     Indication: Systemic lupus erythematosus
     Dosage: UNK
     Route: 065
  2. BELIMUMAB [Suspect]
     Active Substance: BELIMUMAB
     Indication: Systemic lupus erythematosus
     Dosage: 10 MILLIGRAM/KILOGRAM (10 MG/KG PER MONTH)
     Route: 065
  3. HYDROXYCHLOROQUINE [Suspect]
     Active Substance: HYDROXYCHLOROQUINE
     Indication: Systemic lupus erythematosus
     Dosage: 400 MILLIGRAM, ONCE A DAY
     Route: 065
  4. METHOTREXATE [Suspect]
     Active Substance: METHOTREXATE
     Indication: Systemic lupus erythematosus
     Dosage: UNK
     Route: 065
  5. RITUXIMAB [Suspect]
     Active Substance: RITUXIMAB
     Indication: Systemic lupus erythematosus
     Dosage: UNK
     Route: 065
  6. THALIDOMIDE [Suspect]
     Active Substance: THALIDOMIDE
     Indication: Systemic lupus erythematosus
     Dosage: UNK
     Route: 065
  7. USTEKINUMAB [Suspect]
     Active Substance: USTEKINUMAB
     Indication: Systemic lupus erythematosus
     Dosage: UNK
     Route: 065
  8. ANIFROLUMAB [Concomitant]
     Active Substance: ANIFROLUMAB
     Indication: Systemic lupus erythematosus
     Dosage: THREE INFUSIONS
     Route: 065
     Dates: start: 202111
  9. TOZINAMERAN [Concomitant]
     Active Substance: TOZINAMERAN
     Indication: Prophylaxis
     Dosage: UNK
     Route: 065
     Dates: start: 202107
  10. TOZINAMERAN [Concomitant]
     Active Substance: TOZINAMERAN
     Dosage: UNK
     Route: 065
  11. TOZINAMERAN [Concomitant]
     Active Substance: TOZINAMERAN
     Dosage: UNK
     Route: 065

REACTIONS (1)
  - Treatment failure [Unknown]
